FAERS Safety Report 6189551-X (Version None)
Quarter: 2009Q2

REPORT INFORMATION
  Report Type: 
  Country: None (occurrence: None)
  Receive Date: 20090514
  Receipt Date: 20090506
  Transmission Date: 20091009
  Serious: Yes (Hospitalization)
  Sender: FDA-Public Use
  Company Number: US-BIOGENIDEC-2009BI013867

PATIENT
  Age: 60 Year
  Sex: Male
  Weight: 97 kg

DRUGS (1)
  1. TYSABRI [Suspect]
     Indication: MULTIPLE SCLEROSIS
     Route: 042
     Dates: start: 20080108

REACTIONS (7)
  - ASTHENIA [None]
  - BLOOD GLUCOSE DECREASED [None]
  - DIARRHOEA [None]
  - DRUG HYPERSENSITIVITY [None]
  - NAUSEA [None]
  - VIRAL INFECTION [None]
  - VOMITING [None]
